FAERS Safety Report 6276104-8 (Version None)
Quarter: 2009Q3

REPORT INFORMATION
  Report Type: 
  Country: None (occurrence: None)
  Receive Date: 20090717
  Receipt Date: 20090717
  Transmission Date: 20100115
  Serious: Yes (Other)
  Sender: FDA-Public Use
  Company Number: None

PATIENT
  Sex: Female
  Weight: 75.2971 kg

DRUGS (2)
  1. FLUTICASONE PROPIONATE [Suspect]
     Indication: RHINITIS ALLERGIC
     Dosage: ONE SPRAY 1-2X QD NASAL SPRAY
     Route: 045
     Dates: start: 20090706, end: 20090711
  2. LOTENSIN [Concomitant]

REACTIONS (3)
  - EAR PAIN [None]
  - HEADACHE [None]
  - SWELLING FACE [None]
